FAERS Safety Report 20593706 (Version 3)
Quarter: 2022Q1

REPORT INFORMATION
  Report Type: Report from Study
  Country: AU (occurrence: AU)
  Receive Date: 20220315
  Receipt Date: 20220329
  Transmission Date: 20220423
  Serious: Yes (Hospitalization)
  Sender: FDA-Public Use
  Company Number: AU-ABBVIE-22K-008-4284571-00

PATIENT
  Age: 35 Year
  Sex: Female

DRUGS (9)
  1. HUMIRA [Suspect]
     Active Substance: ADALIMUMAB
     Indication: Colitis ulcerative
     Route: 058
     Dates: start: 20171006, end: 20191018
  2. HUMIRA [Suspect]
     Active Substance: ADALIMUMAB
     Route: 058
     Dates: start: 20191019, end: 20200801
  3. PREDNISOLONE [Concomitant]
     Active Substance: PREDNISOLONE
     Indication: Immunosuppression
     Route: 048
     Dates: start: 2013
  4. VITAMIN D [Concomitant]
     Active Substance: VITAMIN D NOS
     Indication: Vitamin supplementation
     Route: 048
     Dates: start: 20180623
  5. CALTRATE [Concomitant]
     Active Substance: CALCIUM CARBONATE
     Indication: Vitamin supplementation
     Route: 048
     Dates: start: 20130712
  6. PANTOPRAZOLE [Concomitant]
     Active Substance: PANTOPRAZOLE
     Indication: Gastrooesophageal reflux disease
     Route: 048
     Dates: start: 201811
  7. MESALAMINE [Concomitant]
     Active Substance: MESALAMINE
     Indication: Colitis ulcerative
     Route: 048
     Dates: start: 20181130
  8. FERROUS SULFATE [Concomitant]
     Active Substance: FERROUS SULFATE
     Indication: Mineral supplementation
     Route: 048
     Dates: start: 2013
  9. TACROLIMUS [Concomitant]
     Active Substance: TACROLIMUS
     Indication: Transplant
     Route: 048
     Dates: start: 20200404

REACTIONS (1)
  - Biliary anastomosis complication [Recovered/Resolved]

NARRATIVE: CASE EVENT DATE: 20210906
